FAERS Safety Report 18544501 (Version 1)
Quarter: 2020Q4

REPORT INFORMATION
  Report Type: Spontaneous
  Country: PH (occurrence: PH)
  Receive Date: 20201125
  Receipt Date: 20201125
  Transmission Date: 20210114
  Serious: No
  Sender: FDA-Public Use
  Company Number: PH-TOLMAR, INC.-20PH023924

PATIENT
  Age: 1 Year
  Sex: Female

DRUGS (3)
  1. UREA. [Suspect]
     Active Substance: UREA
     Indication: SKIN LESION
     Dosage: UNK, 10%
     Route: 065
  2. WHITE PETROLATUM [Suspect]
     Active Substance: PETROLATUM
     Indication: SKIN LESION
     Dosage: UNK
     Route: 065
  3. KETOCONAZOLE. [Suspect]
     Active Substance: KETOCONAZOLE
     Indication: SKIN LESION
     Dosage: UNK, QD
     Route: 061

REACTIONS (2)
  - Skin exfoliation [Unknown]
  - Scab [Unknown]
